FAERS Safety Report 5167835-1 (Version None)
Quarter: 2006Q4

REPORT INFORMATION
  Report Type: 
  Country: None (occurrence: None)
  Receive Date: 20061130
  Receipt Date: 20061130
  Transmission Date: 20070319
  Serious: Yes (Hospitalization)
  Sender: FDA-Public Use
  Company Number: None

PATIENT
  Age: 81 Year
  Sex: Male

DRUGS (4)
  1. LIPITOR [Suspect]
     Indication: HYPERLIPIDAEMIA
     Dosage: 10 MG DAILY PO
     Route: 048
  2. ASPIRIN [Concomitant]
  3. ACEON [Concomitant]
  4. VICODIN [Concomitant]

REACTIONS (1)
  - LIVER FUNCTION TEST ABNORMAL [None]
